FAERS Safety Report 7012709-4 (Version None)
Quarter: 2010Q3

REPORT INFORMATION
  Report Type: 
  Country: None (occurrence: None)
  Receive Date: 20100924
  Receipt Date: 20100915
  Transmission Date: 20110219
  Serious: Yes (Other)
  Sender: FDA-Public Use
  Company Number: GB-ROCHE-727641

PATIENT
  Sex: Female

DRUGS (2)
  1. PEGASYS [Suspect]
     Indication: HEPATITIS C
     Route: 058
     Dates: start: 20100311
  2. COPEGUS [Suspect]
     Indication: HEPATITIS C
     Dosage: ACTION TAKEN WITH DRUG: DOSE NOT CHANGED.
     Route: 050
     Dates: start: 20100311

REACTIONS (1)
  - ABORTION SPONTANEOUS [None]
